FAERS Safety Report 6637609-0 (Version None)
Quarter: 2010Q1

REPORT INFORMATION
  Report Type: 
  Country: None (occurrence: None)
  Receive Date: 20100317
  Receipt Date: 20100306
  Transmission Date: 20100710
  Serious: Yes (Hospitalization)
  Sender: FDA-Public Use
  Company Number: US-JNJFOC-20100303100

PATIENT
  Sex: Male
  Weight: 82.19 kg

DRUGS (2)
  1. INFLIXIMAB [Suspect]
     Indication: INFLAMMATORY BOWEL DISEASE
     Route: 042
  2. HUMIRA [Concomitant]
     Indication: INFLAMMATORY BOWEL DISEASE

REACTIONS (2)
  - IMPETIGO [None]
  - STAPHYLOCOCCAL INFECTION [None]
